FAERS Safety Report 4614068-0 (Version None)
Quarter: 2005Q1

REPORT INFORMATION
  Report Type: 
  Country: None (occurrence: None)
  Receive Date: 20050316
  Receipt Date: 20050307
  Transmission Date: 20050727
  Serious: Yes (Hospitalization)
  Sender: FDA-Public Use
  Company Number: 2005-03-0227

PATIENT
  Age: 55 Year
  Sex: Female

DRUGS (3)
  1. NASONEX [Suspect]
     Dosage: 2PUFFS QD NASAL SPRAY
  2. AGREAL [Concomitant]
  3. OGAST [Concomitant]

REACTIONS (2)
  - BLOOD POTASSIUM ABNORMAL [None]
  - MALAISE [None]
